FAERS Safety Report 11706590 (Version 1)
Quarter: 2015Q4

REPORT INFORMATION
  Report Type: Report from Study
  Country: US (occurrence: US)
  Receive Date: 20151106
  Receipt Date: 20151106
  Transmission Date: 20160304
  Serious: Yes (Other)
  Sender: FDA-Public Use
  Company Number: US-JNJFOC-20151102047

PATIENT

DRUGS (1)
  1. REMICADE [Suspect]
     Active Substance: INFLIXIMAB
     Indication: COLITIS ULCERATIVE
     Route: 042

REACTIONS (7)
  - Migraine [Unknown]
  - Colitis [Unknown]
  - Drug ineffective [Unknown]
  - Fatigue [Unknown]
  - Intestinal resection [Unknown]
  - Arthralgia [Unknown]
  - Reflux laryngitis [Unknown]
